FAERS Safety Report 8888923 (Version 1)
Quarter: 2012Q4

REPORT INFORMATION
  Report Type: 
  Country: US (occurrence: US)
  Receive Date: 20121106
  Receipt Date: 20121106
  Transmission Date: 20130627
  Serious: Yes (Hospitalization)
  Sender: FDA-Public Use
  Company Number: PHEH2012US021727

PATIENT
  Sex: Male
  Weight: 61.22 kg

DRUGS (3)
  1. GILENYA [Suspect]
     Indication: MULTIPLE SCLEROSIS
     Dosage: 0.5 mg, QD
     Route: 048
     Dates: start: 20120126, end: 20120523
  2. MULTIVITAMINS [Concomitant]
  3. ALBUTEROL [Concomitant]

REACTIONS (1)
  - Asthma [Recovered/Resolved]
